FAERS Safety Report 7391099-1 (Version None)
Quarter: 2011Q2

REPORT INFORMATION
  Report Type: 
  Country: None (occurrence: None)
  Receive Date: 20110404
  Receipt Date: 20110323
  Transmission Date: 20111010
  Serious: Yes (Other)
  Sender: FDA-Public Use
  Company Number: IT-CELGENEUS-083-C5013-11011447

PATIENT
  Sex: Male
  Weight: 74 kg

DRUGS (4)
  1. LENALIDOMIDE [Suspect]
     Indication: MULTIPLE MYELOMA
     Dosage: 10 MILLIGRAM
     Route: 048
     Dates: start: 20101207, end: 20101227
  2. PREDNISONE [Suspect]
     Indication: MULTIPLE MYELOMA
     Dosage: 144 MILLIGRAM
     Dates: start: 20070904, end: 20080416
  3. LENALIDOMIDE [Suspect]
     Route: 048
     Dates: start: 20070904, end: 20100531
  4. MELPHALAN [Suspect]
     Indication: MULTIPLE MYELOMA
     Dosage: 12 MILLIGRAM
     Dates: start: 20070904, end: 20080416

REACTIONS (1)
  - ACUTE MYELOID LEUKAEMIA [None]
